FAERS Safety Report 15842695 (Version 1)
Quarter: 2019Q1

REPORT INFORMATION
  Report Type: Report from Study
  Country: DE (occurrence: DE)
  Receive Date: 20190118
  Receipt Date: 20190118
  Transmission Date: 20190417
  Serious: Yes (Hospitalization)
  Sender: FDA-Public Use
  Company Number: PHHO2013DE013242

PATIENT
  Age: 36 Year
  Sex: Female

DRUGS (7)
  1. EVEROLIMUS. [Suspect]
     Active Substance: EVEROLIMUS
     Indication: HODGKIN^S DISEASE
     Dosage: 7.5 MG, (2.5*3)
     Route: 048
     Dates: start: 20130927
  2. CISPLATIN. [Suspect]
     Active Substance: CISPLATIN
     Indication: HODGKIN^S DISEASE
     Dosage: 100 MG/M2, DAY 1
     Route: 065
     Dates: start: 20130928
  3. CYTARABINE. [Suspect]
     Active Substance: CYTARABINE
     Indication: HODGKIN^S DISEASE
     Dosage: 2000 MG/M2, DAY 2 1-0-1
     Route: 065
     Dates: start: 20130929
  4. DEXAMETHASONE SANDOZ [Suspect]
     Active Substance: DEXAMETHASONE
     Dosage: 80 MG, UNK
     Route: 065
  5. DEXAMETHASONE SANDOZ [Suspect]
     Active Substance: DEXAMETHASONE
     Indication: HODGKIN^S DISEASE
     Dosage: 160 MG, UNK
     Route: 065
     Dates: start: 20130928
  6. EVEROLIMUS. [Suspect]
     Active Substance: EVEROLIMUS
     Dosage: 7.5 MG, (2.5*3)
     Route: 048
  7. CYTARABINE. [Suspect]
     Active Substance: CYTARABINE
     Dosage: 2000 MG/M2, DAY 2 1-0-1
     Route: 065

REACTIONS (1)
  - Syncope [Recovered/Resolved]

NARRATIVE: CASE EVENT DATE: 20131003
